FAERS Safety Report 9746210 (Version 3)
Quarter: 2014Q1

REPORT INFORMATION
  Report Type: Spontaneous
  Country: FR (occurrence: FR)
  Receive Date: 20131211
  Receipt Date: 20140113
  Transmission Date: 20141002
  Serious: Yes (Other)
  Sender: FDA-Public Use
  Company Number: PHHY2013FR132010

PATIENT
  Age: 29 Year
  Sex: Female
  Weight: 62 kg

DRUGS (3)
  1. ENALAPRIL HYDROCHLOROTHIAZIDE BC [Suspect]
     Dosage: 2 DF MORNING, 2 DF EVENING
     Route: 048
     Dates: start: 20131105, end: 20131111
  2. AMOXICILLIN [Suspect]
     Indication: TOOTHACHE
     Dosage: 2 DF, MORNING AND EVENING
  3. AMOXICILLIN [Suspect]
     Indication: TOOTH INFECTION

REACTIONS (10)
  - Drug dispensing error [Unknown]
  - Accidental overdose [Unknown]
  - Wrong drug administered [Unknown]
  - Micturition urgency [Not Recovered/Not Resolved]
  - Haematuria [Unknown]
  - Fatigue [Not Recovered/Not Resolved]
  - Chest pain [Not Recovered/Not Resolved]
  - Proteinuria [Unknown]
  - Creatinine urine increased [Unknown]
  - Hyponatraemia [Unknown]
